FAERS Safety Report 9419657 (Version 1)
Quarter: 2013Q3

REPORT INFORMATION
  Report Type: Spontaneous
  Country: US (occurrence: None)
  Receive Date: 20130723
  Receipt Date: 20130723
  Transmission Date: 20140515
  Serious: Yes (Hospitalization, Other)
  Sender: FDA-Public Use
  Company Number: 2013US001692

PATIENT
  Age: 77 Year
  Sex: Male
  Weight: 86.6 kg

DRUGS (4)
  1. ICLUSIG [Suspect]
     Indication: CHRONIC MYELOID LEUKAEMIA
     Route: 048
     Dates: start: 201302, end: 20130519
  2. TRIAMTERENE AND HYDROCHLOROTHIAZIDE (HYDROCHLOROTHIAZIDE, TRIAMTERENE) [Concomitant]
  3. ASPIRIN (ASPIRIN) [Concomitant]
  4. CITALOPRAM (CITALOPRAM) [Concomitant]

REACTIONS (6)
  - Cardiomegaly [None]
  - Ventricular tachycardia [None]
  - Myocardial infarction [None]
  - Coronary artery disease [None]
  - Atrial fibrillation [None]
  - Atelectasis [None]
